FAERS Safety Report 17532891 (Version 2)
Quarter: 2020Q3

REPORT INFORMATION
  Report Type: Other
  Country: US (occurrence: US)
  Receive Date: 20200312
  Receipt Date: 20200928
  Transmission Date: 20201102
  Serious: Yes (Other)
  Sender: FDA-Public Use
  Company Number: US-INNOGENIX, LLC-2081546

PATIENT
  Age: 4 Year
  Sex: Female

DRUGS (1)
  1. PROPRANOLOL HYDROCHLORIDE. [Suspect]
     Active Substance: PROPRANOLOL HYDROCHLORIDE
     Indication: HAEMANGIOMA CONGENITAL
     Route: 048

REACTIONS (7)
  - Hypoglycaemia [Recovered/Resolved]
  - Mental status changes [Recovered/Resolved]
  - Sinus bradycardia [Recovered/Resolved]
  - Hyperkalaemia [Recovered/Resolved]
  - Product use in unapproved indication [Unknown]
  - Unresponsive to stimuli [Recovered/Resolved]
  - Generalised tonic-clonic seizure [Recovered/Resolved]
